FAERS Safety Report 4420851-7 (Version None)
Quarter: 2004Q3

REPORT INFORMATION
  Report Type: 
  Country: None (occurrence: None)
  Receive Date: 20040809
  Receipt Date: 20040625
  Transmission Date: 20050211
  Serious: Yes (Hospitalization)
  Sender: FDA-Public Use
  Company Number: 200417785GDDC

PATIENT
  Age: 50 Year
  Sex: Female

DRUGS (1)
  1. FUROSEMIDE [Suspect]
     Indication: OEDEMA
     Dosage: DOSE: 40-60
     Route: 048

REACTIONS (13)
  - BLOOD ALDOSTERONE INCREASED [None]
  - BLOOD CREATININE INCREASED [None]
  - BLOOD OSMOLARITY INCREASED [None]
  - BLOOD URIC ACID INCREASED [None]
  - DRUG DEPENDENCE [None]
  - HYPOKALAEMIA [None]
  - MALAISE [None]
  - OEDEMA PERIPHERAL [None]
  - STAPHYLOCOCCAL INFECTION [None]
  - SWELLING FACE [None]
  - URINARY TRACT INFECTION [None]
  - URINE OSMOLARITY INCREASED [None]
  - URINE URIC ACID INCREASED [None]
